FAERS Safety Report 5074387-3 (Version None)
Quarter: 2006Q3

REPORT INFORMATION
  Report Type: 
  Country: None (occurrence: None)
  Receive Date: 20060803
  Receipt Date: 20060727
  Transmission Date: 20061208
  Serious: Yes (Life-Threatening)
  Sender: FDA-Public Use
  Company Number: CHWYE753020JUN06

PATIENT
  Age: 43 Year
  Sex: Female

DRUGS (1)
  1. EFFEXOR [Suspect]
     Indication: DEPRESSION
     Dosage: 75 MG 1X PER 1 DAY, ORAL
     Route: 048
     Dates: start: 20060301

REACTIONS (1)
  - CHRONIC LYMPHOCYTIC LEUKAEMIA [None]
